FAERS Safety Report 8788432 (Version 2)
Quarter: 2012Q4

REPORT INFORMATION
  Report Type: 
  Country: US (occurrence: US)
  Receive Date: 20120914
  Receipt Date: 20121026
  Transmission Date: 20130627
  Serious: No
  Sender: FDA-Public Use
  Company Number: US-VERTEX PHARMACEUTICAL INC.-AE-2012-011833

PATIENT
  Sex: Female

DRUGS (3)
  1. VX-950 [Suspect]
     Indication: HEPATITIS C
     Dosage: 750 mg, tid
     Route: 048
     Dates: start: 20120712
  2. PEGASYS [Concomitant]
     Indication: HEPATITIS C
     Dosage: 150 ?g, qw
     Route: 058
     Dates: start: 20120712
  3. RIBASPHERE [Concomitant]
     Indication: HEPATITIS C
     Dosage: 600 mg, bid
     Route: 048
     Dates: start: 20120712

REACTIONS (5)
  - Adverse event [Unknown]
  - Alopecia [Unknown]
  - Scratch [Unknown]
  - Fatigue [Unknown]
  - Pruritus [Unknown]
